FAERS Safety Report 9628695 (Version 1)
Quarter: 2013Q4

REPORT INFORMATION
  Report Type: Spontaneous
  Country: TR (occurrence: TR)
  Receive Date: 20131017
  Receipt Date: 20131017
  Transmission Date: 20140711
  Serious: Yes (Hospitalization)
  Sender: FDA-Public Use
  Company Number: TR-MYLANLABS-2013S1022452

PATIENT
  Age: 57 Year
  Sex: Female

DRUGS (7)
  1. PREDNISOLONE [Suspect]
     Indication: SYSTEMIC LUPUS ERYTHEMATOSUS
     Dosage: 5 MG/DAY
     Route: 065
  2. ZOLEDRONIC ACID [Suspect]
     Indication: OSTEOPENIA
     Dosage: 5 MG YEARLY
     Route: 041
  3. FUROSEMIDE [Suspect]
     Dosage: 40MG EVERY OTHER DAY POSTOPERATIVELY
     Route: 065
  4. HYDROXYCHLOROQUINE [Concomitant]
     Dosage: 200 MG/DAY POSTOPERATIVELY
     Route: 065
  5. LANSOPRAZOLE [Concomitant]
     Dosage: 30 MG/DAY
     Route: 065
  6. CALCIUM [Concomitant]
     Dosage: 1200 MG/DAY POSTOPERATIVELY
     Route: 048
  7. COLECALCIFEROL [Concomitant]
     Dosage: 2000 IU/DAY POSTOPERATIVELY
     Route: 048

REACTIONS (4)
  - Osteopenia [Unknown]
  - Hypocalcaemia [Recovered/Resolved]
  - Hypokalaemia [Recovered/Resolved]
  - Hyponatraemia [Recovered/Resolved]
